FAERS Safety Report 21734603 (Version 2)
Quarter: 2025Q3

REPORT INFORMATION
  Report Type: Spontaneous
  Country: US (occurrence: US)
  Receive Date: 20221215
  Receipt Date: 20250730
  Transmission Date: 20251020
  Serious: No
  Sender: JOHNSON AND JOHNSON
  Company Number: US-VIIV HEALTHCARE LIMITED-US2022AMR183487

PATIENT
  Age: 54 Year
  Sex: Female

DRUGS (2)
  1. RILPIVIRINE [Suspect]
     Active Substance: RILPIVIRINE
     Indication: HIV infection
     Dosage: UNK, MO, UNKNOWN DOSE ONCE PER MONTH
     Route: 065
     Dates: start: 20161001
  2. CABOTEGRAVIR [Suspect]
     Active Substance: CABOTEGRAVIR
     Indication: HIV infection
     Dosage: UNK, MO, UNKNOWN DOSE ONCE PER MONTH
     Route: 065
     Dates: start: 20161001

REACTIONS (4)
  - Malaise [Recovered/Resolved]
  - Injection site nodule [Unknown]
  - Hypersomnia [Recovering/Resolving]
  - Injection site pain [Unknown]
